FAERS Safety Report 5997870-2 (Version None)
Quarter: 2008Q4

REPORT INFORMATION
  Report Type: 
  Country: None (occurrence: None)
  Receive Date: 20081212
  Receipt Date: 20081125
  Transmission Date: 20090506
  Serious: No
  Sender: FDA-Public Use
  Company Number: US-ABBOTT-08P-163-0489633-00

PATIENT
  Sex: Female
  Weight: 71.732 kg

DRUGS (7)
  1. HUMIRA [Suspect]
     Indication: RHEUMATOID ARTHRITIS
     Dosage: 1 X ONLY FILLED WITH PEN INSTEAD OF PFS
     Route: 058
     Dates: start: 20081101
  2. LISINOPRIL [Concomitant]
     Indication: RENAL DISORDER
     Dosage: 0.5 TABLET
     Route: 048
  3. HYDROCHLOROTHIAZIDE [Concomitant]
     Indication: NEPHROLITHIASIS
     Dosage: 0.5 TABLET
     Route: 048
  4. CHLORPHENIRAMINE MALEATE AND PSEUDOEPHEDRINE HCL [Concomitant]
     Indication: NASAL CONGESTION
     Dosage: 8/120MG
     Route: 048
  5. NEXIUM [Concomitant]
     Indication: GASTROOESOPHAGEAL REFLUX PROPHYLAXIS
  6. METHOTREXATE [Concomitant]
     Indication: RHEUMATOID ARTHRITIS
  7. SIMVASTATIN [Concomitant]
     Indication: BLOOD CHOLESTEROL
     Route: 048

REACTIONS (2)
  - INCORRECT DOSE ADMINISTERED [None]
  - WRONG TECHNIQUE IN DRUG USAGE PROCESS [None]
